FAERS Safety Report 18419132 (Version 1)
Quarter: 2020Q4

REPORT INFORMATION
  Report Type: Spontaneous
  Country: US (occurrence: US)
  Receive Date: 20201023
  Receipt Date: 20201023
  Transmission Date: 20210114
  Serious: No
  Sender: FDA-Public Use
  Company Number: US-SUNOVION-2020SUN003020

PATIENT
  Sex: Male

DRUGS (1)
  1. LATUDA [Suspect]
     Active Substance: LURASIDONE HYDROCHLORIDE
     Indication: HYPERKINESIA
     Dosage: 80 MG
     Route: 048
     Dates: end: 202001

REACTIONS (6)
  - Therapy cessation [Unknown]
  - Disturbance in attention [Unknown]
  - Mood swings [Unknown]
  - Hyperkinesia [Unknown]
  - Anger [Unknown]
  - Off label use [Unknown]
